FAERS Safety Report 9475063 (Version 1)
Quarter: 2013Q3

REPORT INFORMATION
  Report Type: Spontaneous
  Country: US (occurrence: None)
  Receive Date: 20130822
  Receipt Date: 20130822
  Transmission Date: 20140515
  Serious: Yes (Other)
  Sender: FDA-Public Use
  Company Number: None

PATIENT
  Age: 53 Year
  Sex: Female
  Weight: 69.4 kg

DRUGS (5)
  1. MAGNEVIST [Suspect]
     Dates: start: 200208
  2. AMLOPIDINE BESYLATE [Concomitant]
  3. VALSARTAN [Concomitant]
  4. ATORVASTATIN [Concomitant]
  5. HCTZ [Concomitant]

REACTIONS (2)
  - Eye disorder [None]
  - Musculoskeletal disorder [None]
